FAERS Safety Report 4511203-X (Version None)
Quarter: 2004Q4

REPORT INFORMATION
  Report Type: 
  Country: None (occurrence: None)
  Receive Date: 20041122
  Receipt Date: 20041122
  Transmission Date: 20050328
  Serious: Yes (Hospitalization, Other)
  Sender: FDA-Public Use
  Company Number: None

PATIENT
  Age: 75 Year
  Sex: Male
  Weight: 74.8435 kg

DRUGS (4)
  1. LEVAQUIN [Suspect]
     Indication: ASPIRATION BIOPSY
     Dosage: 1 TAB DAY ORAL
     Route: 048
     Dates: start: 20041109, end: 20041110
  2. LEVAQUIN [Suspect]
     Indication: PROSTATIC SPECIFIC ANTIGEN INCREASED
     Dosage: 1 TAB DAY ORAL
     Route: 048
     Dates: start: 20041109, end: 20041110
  3. LEVAQUIN [Suspect]
     Indication: ASPIRATION BIOPSY
     Dosage: INTRAMUSCULAR
     Route: 030
     Dates: start: 20041110, end: 20041110
  4. LEVAQUIN [Suspect]
     Indication: PROSTATIC SPECIFIC ANTIGEN INCREASED
     Dosage: INTRAMUSCULAR
     Route: 030
     Dates: start: 20041110, end: 20041110

REACTIONS (1)
  - DRUG HYPERSENSITIVITY [None]
